FAERS Safety Report 10861651 (Version 3)
Quarter: 2015Q2

REPORT INFORMATION
  Report Type: Spontaneous
  Country: US (occurrence: US)
  Receive Date: 20150224
  Receipt Date: 20150428
  Transmission Date: 20150821
  Serious: Yes (Other)
  Sender: FDA-Public Use
  Company Number: US-PFIZER INC-2015066771

PATIENT
  Age: 72 Year
  Sex: Female
  Weight: 63 kg

DRUGS (12)
  1. LYRICA [Concomitant]
     Active Substance: PREGABALIN
     Indication: NEUROPATHY PERIPHERAL
  2. XELODA [Concomitant]
     Active Substance: CAPECITABINE
     Dosage: UNK
  3. INTEGRA [Concomitant]
     Dosage: UNK
  4. PROTECTA [Concomitant]
     Dosage: UNK
  5. AROMASIN [Suspect]
     Active Substance: EXEMESTANE
     Indication: BREAST CANCER METASTATIC
     Dosage: 25 MG, 1X/DAY
     Route: 048
     Dates: start: 2007
  6. WARFARIN [Concomitant]
     Active Substance: WARFARIN
     Dosage: UNK
  7. LYRICA [Concomitant]
     Active Substance: PREGABALIN
     Indication: HERPES ZOSTER
     Dosage: 50 MG, 2X/DAY
     Route: 048
  8. EMEND [Concomitant]
     Active Substance: APREPITANT
     Dosage: UNK
  9. VYTORIN [Concomitant]
     Active Substance: EZETIMIBE\SIMVASTATIN
     Dosage: UNK
  10. BTREX [Concomitant]
     Dosage: UNK
  11. PROTONIX [Concomitant]
     Active Substance: PANTOPRAZOLE SODIUM
     Indication: GASTROOESOPHAGEAL REFLUX DISEASE
     Dosage: 40 MG, 1X/DAY
     Route: 048
  12. SYNTHROID [Concomitant]
     Active Substance: LEVOTHYROXINE SODIUM
     Dosage: UNK

REACTIONS (5)
  - Throat cancer [Unknown]
  - Lung neoplasm malignant [Unknown]
  - Second primary malignancy [Unknown]
  - Disease progression [Unknown]
  - Neoplasm malignant [Unknown]
